FAERS Safety Report 7763986-3 (Version None)
Quarter: 2011Q3

REPORT INFORMATION
  Report Type: 
  Country: None (occurrence: None)
  Receive Date: 20110916
  Receipt Date: 20110909
  Transmission Date: 20111222
  Serious: Yes (Other)
  Sender: FDA-Public Use
  Company Number: 2011MA009561

PATIENT
  Age: 42 Year
  Sex: Female

DRUGS (4)
  1. MIRTAZAPINE [Suspect]
     Dosage: ;PO
     Route: 048
     Dates: start: 20110624, end: 20110626
  2. MIRTAZAPINE [Suspect]
     Dosage: ;PO
     Route: 048
     Dates: start: 20110624, end: 20110626
  3. DIAZEPAM [Concomitant]
  4. RISPERIDONE [Concomitant]

REACTIONS (2)
  - EYE SWELLING [None]
  - DYSPNOEA [None]
